FAERS Safety Report 10368756 (Version 1)
Quarter: 2014Q3

REPORT INFORMATION
  Report Type: Other
  Country: FR (occurrence: FR)
  Receive Date: 20140807
  Receipt Date: 20140807
  Transmission Date: 20150326
  Serious: Yes (Other)
  Sender: FDA-Public Use
  Company Number: FR-MYLAN-2014S1017651

PATIENT

DRUGS (2)
  1. LEVOFLOXACIN [Suspect]
     Active Substance: LEVOFLOXACIN
     Indication: BRONCHITIS
     Dosage: 500 MG,QD
     Route: 048
     Dates: start: 20140514, end: 20140519
  2. CELESTENE [Concomitant]
     Active Substance: BETAMETHASONE
     Indication: PRODUCT USED FOR UNKNOWN INDICATION
     Dosage: 2 MG,UNK

REACTIONS (12)
  - Abasia [None]
  - Insomnia [None]
  - Vertigo [None]
  - Musculoskeletal stiffness [None]
  - Nervousness [None]
  - Arthralgia [None]
  - Headache [None]
  - Inflammation [None]
  - Bone pain [None]
  - Walking disability [Not Recovered/Not Resolved]
  - Tendon pain [None]
  - Diarrhoea [None]

NARRATIVE: CASE EVENT DATE: 20140519
